FAERS Safety Report 9838819 (Version 2)
Quarter: 2014Q1

REPORT INFORMATION
  Report Type: Report from Study
  Country: US (occurrence: US)
  Receive Date: 20140123
  Receipt Date: 20140123
  Transmission Date: 20141002
  Serious: Yes (Hospitalization)
  Sender: FDA-Public Use
  Company Number: US-EXELIXIS-XL18414003901

PATIENT
  Sex: Female
  Weight: 72 kg

DRUGS (11)
  1. XL184 [Suspect]
     Indication: BREAST CANCER
     Dosage: 20 MG, QD
     Route: 048
     Dates: start: 20130822, end: 20131121
  2. CALTRATE [Concomitant]
  3. DIOVAN [Concomitant]
  4. LIPITOR [Concomitant]
  5. MICRO-K [Concomitant]
  6. MULTIVITAMIN [Concomitant]
  7. NORVASC [Concomitant]
  8. OMEGA-3 [Concomitant]
  9. K PHOS NEUTRAL [Concomitant]
  10. OMEPRAZOLE [Concomitant]
     Dosage: 60 MG, QD
     Route: 048
     Dates: start: 20130822, end: 2013
  11. OMEPRAZOLE [Concomitant]
     Dosage: 20 MG, QD
     Route: 048
     Dates: start: 2013, end: 20131116

REACTIONS (3)
  - Vocal cord paralysis [Unknown]
  - Pleural effusion [Unknown]
  - Breast cancer [Unknown]
